FAERS Safety Report 19738298 (Version 1)
Quarter: 2021Q3

REPORT INFORMATION
  Report Type: Spontaneous
  Country: US (occurrence: US)
  Receive Date: 20210820
  Receipt Date: 20210820
  Transmission Date: 20211014
  Serious: Yes (Death)
  Sender: FDA-Public Use
  Company Number: None

PATIENT
  Age: 77 Year
  Sex: Female
  Weight: 91.35 kg

DRUGS (11)
  1. VITAMIN D 1000IU [Concomitant]
  2. TYLENOL [Concomitant]
     Active Substance: ACETAMINOPHEN
  3. ASPIRIN 81MG [Concomitant]
     Active Substance: ASPIRIN
  4. CINNAMON 500MG [Concomitant]
  5. JANUVIA [Concomitant]
     Active Substance: SITAGLIPTIN PHOSPHATE
  6. LISINOPRIL. [Concomitant]
     Active Substance: LISINOPRIL
  7. FISH OIL 1000MG [Concomitant]
  8. ATORVASTATIN 40MG [Concomitant]
     Active Substance: ATORVASTATIN
  9. INLYTA [Suspect]
     Active Substance: AXITINIB
     Indication: RENAL CANCER
     Dosage: ?          OTHER FREQUENCY:Q12H;?
     Route: 048
     Dates: start: 20210619, end: 20210820
  10. METFORMIN 500MG [Concomitant]
     Active Substance: METFORMIN HYDROCHLORIDE
  11. GLIMEPIRIDE 1MG [Concomitant]
     Active Substance: GLIMEPIRIDE

REACTIONS (1)
  - Death [None]

NARRATIVE: CASE EVENT DATE: 20210820
